FAERS Safety Report 4647186-1 (Version None)
Quarter: 2005Q2

REPORT INFORMATION
  Report Type: 
  Country: None (occurrence: None)
  Receive Date: 20050426
  Receipt Date: 20050414
  Transmission Date: 20051028
  Serious: Yes (Other)
  Sender: FDA-Public Use
  Company Number: 2005059900

PATIENT
  Sex: Female
  Weight: 63.5036 kg

DRUGS (6)
  1. BEXTRA [Suspect]
     Indication: ARTHRALGIA
     Dosage: (1 IN 1 D), ORAL
     Route: 048
     Dates: end: 20041201
  2. PREDNISONE TAB [Suspect]
     Indication: URTICARIA
     Dosage: 20 MG
     Dates: start: 20041201
  3. METHOTREXATE [Concomitant]
  4. DOCUSATE SODIUM (DOCUSATE SODIUM) [Concomitant]
  5. ESTRADIOL [Concomitant]
  6. ALL OTHER THERAPEUTIC PRODUCTS ( ALL OTHER THERAPEUTIC PRODUCTS) [Concomitant]

REACTIONS (11)
  - BLOOD URINE PRESENT [None]
  - DIZZINESS [None]
  - FLUID RETENTION [None]
  - JOINT ARTHROPLASTY [None]
  - KNEE ARTHROPLASTY [None]
  - PRURITUS [None]
  - SHOULDER ARTHROPLASTY [None]
  - SKIN BURNING SENSATION [None]
  - STOMACH DISCOMFORT [None]
  - URTICARIA GENERALISED [None]
  - WEIGHT INCREASED [None]
